FAERS Safety Report 5123865-7 (Version None)
Quarter: 2006Q4

REPORT INFORMATION
  Report Type: 
  Country: None (occurrence: None)
  Receive Date: 20061010
  Receipt Date: 20061003
  Transmission Date: 20070319
  Serious: Yes (Life-Threatening, Hospitalization)
  Sender: FDA-Public Use
  Company Number: FR-GLAXOSMITHKLINE-B0441224A

PATIENT
  Age: 79 Year
  Sex: Male

DRUGS (3)
  1. AUGMENTIN [Suspect]
     Indication: SUPERINFECTION LUNG
     Dosage: 1G TWICE PER DAY
     Route: 048
     Dates: start: 20060904, end: 20060907
  2. CIFLOX [Suspect]
     Indication: SUPERINFECTION LUNG
     Dosage: 500MG TWICE PER DAY
     Route: 048
     Dates: start: 20060904, end: 20060907
  3. PREVISCAN [Suspect]
     Indication: ATRIAL FIBRILLATION
     Dosage: 20MG PER DAY
     Route: 048

REACTIONS (6)
  - CEREBRAL HAEMORRHAGE [None]
  - CONFUSIONAL STATE [None]
  - DISORIENTATION [None]
  - DRUG INTERACTION [None]
  - PROTHROMBIN LEVEL DECREASED [None]
  - SUBDURAL HAEMATOMA [None]
